FAERS Safety Report 24915814 (Version 2)
Quarter: 2025Q3

REPORT INFORMATION
  Report Type: Spontaneous
  Country: US (occurrence: US)
  Receive Date: 20250203
  Receipt Date: 20250809
  Transmission Date: 20251020
  Serious: Yes (Other)
  Sender: ALEXION PHARMACEUTICALS
  Company Number: US-ASTRAZENECA-202412USA027172US

PATIENT
  Age: 46 Year
  Sex: Female

DRUGS (27)
  1. SEROQUEL [Suspect]
     Active Substance: QUETIAPINE FUMARATE
     Route: 065
  2. ZOFRAN [Suspect]
     Active Substance: ONDANSETRON HYDROCHLORIDE
     Route: 065
  3. XOLAIR [Suspect]
     Active Substance: OMALIZUMAB
     Route: 065
  4. EMGALITY [Concomitant]
     Active Substance: GALCANEZUMAB-GNLM
  5. HUMIRA [Concomitant]
     Active Substance: ADALIMUMAB
  6. ZEPBOUND [Concomitant]
     Active Substance: TIRZEPATIDE
  7. ADDERALL [Concomitant]
     Active Substance: AMPHETAMINE ASPARTATE\AMPHETAMINE SULFATE\DEXTROAMPHETAMINE SACCHARATE\DEXTROAMPHETAMINE SULFATE
  8. PROZAC [Concomitant]
     Active Substance: FLUOXETINE HYDROCHLORIDE
  9. ZYRTEC [Concomitant]
     Active Substance: CETIRIZINE HYDROCHLORIDE
  10. BUSPAR [Concomitant]
     Active Substance: BUSPIRONE HYDROCHLORIDE
  11. RESTORIL [Concomitant]
     Active Substance: TEMAZEPAM
  12. TOPAMAX [Concomitant]
     Active Substance: TOPIRAMATE
  13. MINIPRESS [Concomitant]
     Active Substance: PRAZOSIN HYDROCHLORIDE
  14. NEURONTIN [Concomitant]
     Active Substance: GABAPENTIN
  15. SINGULAIR [Concomitant]
     Active Substance: MONTELUKAST SODIUM
  16. CLARITIN [Concomitant]
     Active Substance: LORATADINE
  17. VESICARE [Concomitant]
     Active Substance: SOLIFENACIN SUCCINATE
  18. PREMARIN [Concomitant]
     Active Substance: ESTROGENS, CONJUGATED
  19. COENZYME Q10 [Concomitant]
     Active Substance: DIETARY SUPPLEMENT\UBIDECARENONE
  20. GLUCOSAMINE [Concomitant]
     Active Substance: GLUCOSAMINE
  21. VITAMIN A [Concomitant]
     Active Substance: VITAMIN A
  22. VITAMIN D3 [Concomitant]
     Active Substance: CHOLECALCIFEROL
  23. IRON [Concomitant]
     Active Substance: IRON
  24. ATIVAN [Concomitant]
     Active Substance: LORAZEPAM
  25. COMPAZINE [Concomitant]
     Active Substance: PROCHLORPERAZINE MALEATE
  26. AMERGE [Concomitant]
     Active Substance: NARATRIPTAN HYDROCHLORIDE
  27. UBRELVY [Concomitant]
     Active Substance: UBROGEPANT

REACTIONS (20)
  - Hidradenitis [Unknown]
  - Psoriasis [Unknown]
  - Ehlers-Danlos syndrome [Unknown]
  - Mast cell activation syndrome [Unknown]
  - Migraine [Unknown]
  - Urticaria chronic [Unknown]
  - Psoriatic arthropathy [Unknown]
  - Fibromyalgia [Unknown]
  - Aphasia [Unknown]
  - Laryngeal dyskinesia [Unknown]
  - Body mass index [Unknown]
  - Post-traumatic stress disorder [Unknown]
  - Anxiety [Unknown]
  - Depression [Unknown]
  - Obsessive-compulsive disorder [Unknown]
  - Eating disorder [Unknown]
  - Body dysmorphic disorder [Unknown]
  - Axillary pain [Unknown]
  - Lymphadenopathy [Unknown]
  - Lymph node pain [Unknown]
